FAERS Safety Report 6189730-1 (Version None)
Quarter: 2009Q2

REPORT INFORMATION
  Report Type: 
  Country: None (occurrence: None)
  Receive Date: 20090514
  Receipt Date: 20090504
  Transmission Date: 20091009
  Serious: Yes (Other)
  Sender: FDA-Public Use
  Company Number: CA-ASTRAZENECA-2009UW11670

PATIENT
  Age: 58 Year
  Sex: Female

DRUGS (5)
  1. ARIMIDEX [Suspect]
     Route: 048
     Dates: start: 20080401
  2. CALCIUM [Concomitant]
  3. MULTI-VITAMINS [Concomitant]
  4. VITAMIN D [Concomitant]
  5. GLUCOSAMINE [Concomitant]
     Indication: ARTHRALGIA

REACTIONS (11)
  - ALOPECIA [None]
  - ARTHRALGIA [None]
  - DYSPAREUNIA [None]
  - FATIGUE [None]
  - LOSS OF LIBIDO [None]
  - MENISCUS LESION [None]
  - PAIN IN EXTREMITY [None]
  - SOFT TISSUE DISORDER [None]
  - URINARY TRACT INFECTION [None]
  - VULVOVAGINAL DRYNESS [None]
  - WEIGHT INCREASED [None]
